FAERS Safety Report 7674910-6 (Version None)
Quarter: 2011Q3

REPORT INFORMATION
  Report Type: 
  Country: None (occurrence: None)
  Receive Date: 20110810
  Receipt Date: 20110727
  Transmission Date: 20111222
  Serious: Yes (Hospitalization)
  Sender: FDA-Public Use
  Company Number: US-ELI_LILLY_AND_COMPANY-US201106006412

PATIENT
  Age: 77 Year
  Sex: Female
  Weight: 105.67 kg

DRUGS (9)
  1. ZOCOR [Concomitant]
     Dosage: 20 MG, UNKNOWN
  2. CYMBALTA [Suspect]
     Dosage: 20 MG, QD
     Dates: start: 20110201, end: 20110301
  3. CYMBALTA [Suspect]
     Dosage: 40 MG, QD
     Dates: start: 20110401, end: 20110501
  4. ASPIRIN [Concomitant]
  5. CYMBALTA [Suspect]
     Indication: PAIN
     Dosage: UNK, UNKNOWN
     Dates: end: 20060101
  6. CYMBALTA [Suspect]
     Dosage: 30 MG, QD
     Dates: start: 20110301, end: 20110401
  7. OXYCODONE HCL [Concomitant]
     Dosage: UNK, UNKNOWN
  8. CYMBALTA [Suspect]
     Dosage: 60 MG, QD
     Route: 048
     Dates: start: 20110314, end: 20110719
  9. ASCORBIC ACID [Concomitant]
     Dosage: 1 DF, UNK

REACTIONS (12)
  - DRUG INEFFECTIVE [None]
  - FEELING ABNORMAL [None]
  - MEMORY IMPAIRMENT [None]
  - CRYING [None]
  - VERTIGO [None]
  - DYSPNOEA [None]
  - SOMNOLENCE [None]
  - BALANCE DISORDER [None]
  - DRUG WITHDRAWAL SYNDROME [None]
  - FATIGUE [None]
  - ANXIETY [None]
  - DEPRESSION [None]
